FAERS Safety Report 11149299 (Version 15)
Quarter: 2021Q4

REPORT INFORMATION
  Report Type: Spontaneous
  Country: US (occurrence: US)
  Receive Date: 20150529
  Receipt Date: 20211209
  Transmission Date: 20220303
  Serious: Yes (Hospitalization, Other)
  Sender: FDA-Public Use
  Company Number: US-PFIZER INC-2015179799

PATIENT
  Age: 52 Year
  Sex: Female
  Weight: 46 kg

DRUGS (4)
  1. LYRICA [Suspect]
     Active Substance: PREGABALIN
     Indication: Neuropathy peripheral
     Dosage: 150 MG, 3X/DAY
     Dates: start: 2007
  2. LYRICA [Suspect]
     Active Substance: PREGABALIN
     Indication: Autonomic neuropathy
     Dosage: 200 MG, 3X/DAY (TAKE 1 (ONE) CAPSULE BY MOUTH THREE TIMES A DAY)
     Route: 048
     Dates: start: 2008
  3. LYRICA [Suspect]
     Active Substance: PREGABALIN
     Indication: Congenital neuropathy
  4. TRAMADOL [Concomitant]
     Active Substance: TRAMADOL
     Indication: Limb injury
     Dosage: UNK
     Dates: start: 20180829

REACTIONS (6)
  - Tonsil cancer [Recovered/Resolved]
  - Lymphadenopathy [Unknown]
  - Drug dependence [Unknown]
  - Ear pain [Recovered/Resolved]
  - Nervousness [Unknown]
  - Confusional state [Unknown]

NARRATIVE: CASE EVENT DATE: 20150301
